FAERS Safety Report 7403513-3 (Version None)
Quarter: 2011Q2

REPORT INFORMATION
  Report Type: 
  Country: None (occurrence: None)
  Receive Date: 20110408
  Receipt Date: 20110329
  Transmission Date: 20111010
  Serious: Yes (Other)
  Sender: FDA-Public Use
  Company Number: US-MERCK-1102USA03520

PATIENT
  Age: 19 Year
  Sex: Female

DRUGS (3)
  1. ADDERALL TABLETS [Concomitant]
     Route: 065
  2. MAXALT [Suspect]
     Indication: MIGRAINE
     Route: 048
     Dates: start: 20101101
  3. HORMONAL CONTRACEPTIVES (UNSPECIFIED) [Concomitant]
     Route: 065

REACTIONS (2)
  - MALAISE [None]
  - BLINDNESS [None]
